FAERS Safety Report 5976046-9 (Version None)
Quarter: 2008Q4

REPORT INFORMATION
  Report Type: 
  Country: None (occurrence: None)
  Receive Date: 20081124
  Receipt Date: 20080529
  Transmission Date: 20090506
  Serious: Yes (Hospitalization, Other)
  Sender: FDA-Public Use
  Company Number: 48859

PATIENT
  Age: 73 Year
  Sex: Male
  Weight: 108.8633 kg

DRUGS (1)
  1. AMIODARONE HCL [Suspect]
     Indication: ARRHYTHMIA
     Dosage: IV
     Route: 042
     Dates: start: 20080201

REACTIONS (1)
  - MYOCARDIAL INFARCTION [None]
